FAERS Safety Report 5082511-1 (Version None)
Quarter: 2006Q3

REPORT INFORMATION
  Report Type: 
  Country: None (occurrence: None)
  Receive Date: 20060817
  Receipt Date: 20060804
  Transmission Date: 20061208
  Serious: Yes (Death)
  Sender: FDA-Public Use
  Company Number: PHEH2006US10118

PATIENT
  Age: 51 Year
  Sex: Male

DRUGS (5)
  1. GLEEVEC [Suspect]
     Route: 048
  2. METHADONE HCL [Suspect]
     Indication: PAIN
     Dosage: UNK, UNK
     Route: 048
  3. OXYCONTIN [Concomitant]
     Indication: PAIN
     Route: 048
  4. PERCOCET [Concomitant]
     Indication: PAIN
     Route: 048
  5. VICODIN [Concomitant]
     Indication: PAIN
     Route: 048

REACTIONS (2)
  - DEATH [None]
  - DRUG INTERACTION [None]
